FAERS Safety Report 9776296 (Version 4)
Quarter: 2014Q1

REPORT INFORMATION
  Report Type: Spontaneous
  Country: US (occurrence: US)
  Receive Date: 20131220
  Receipt Date: 20140116
  Transmission Date: 20141002
  Serious: Yes (Hospitalization, Other)
  Sender: FDA-Public Use
  Company Number: US-BAXTER-2013BAX049511

PATIENT
  Sex: Female

DRUGS (2)
  1. DIANEAL LOW CALCIUM [Suspect]
     Indication: PERITONEAL DIALYSIS
     Route: 033
     Dates: start: 2007
  2. DIANEAL LOW CALCIUM [Suspect]
     Indication: PERITONEAL DIALYSIS
     Route: 033
     Dates: start: 2007

REACTIONS (7)
  - Hernia [Recovered/Resolved]
  - Incision site infection [Recovered/Resolved]
  - Postoperative wound complication [Recovered/Resolved]
  - Peritonitis bacterial [Recovered/Resolved]
  - Incisional drainage [Recovered/Resolved]
  - Ultrafiltration failure [Recovering/Resolving]
  - Hypertension [Recovering/Resolving]
